FAERS Safety Report 19426606 (Version 1)
Quarter: 2021Q2

REPORT INFORMATION
  Report Type: Spontaneous
  Country: PL (occurrence: PL)
  Receive Date: 20210617
  Receipt Date: 20210617
  Transmission Date: 20210717
  Serious: Yes (Other)
  Sender: FDA-Public Use
  Company Number: PL-TEVA-2021-PL-1922305

PATIENT
  Age: 47 Year
  Sex: Female

DRUGS (2)
  1. LACOSAMIDE. [Interacting]
     Active Substance: LACOSAMIDE
     Indication: JUVENILE MYOCLONIC EPILEPSY
     Dosage: 350 MILLIGRAM DAILY; 150MG IN THE MORNING AND 200MG AT NIGHT
     Route: 065
  2. CARBAMAZEPINE. [Suspect]
     Active Substance: CARBAMAZEPINE
     Indication: JUVENILE MYOCLONIC EPILEPSY
     Dosage: 1000 MILLIGRAM DAILY;
     Route: 065

REACTIONS (3)
  - Condition aggravated [Recovered/Resolved]
  - Juvenile myoclonic epilepsy [Recovered/Resolved]
  - Drug interaction [Recovered/Resolved]
